FAERS Safety Report 4945741-2 (Version None)
Quarter: 2006Q1

REPORT INFORMATION
  Report Type: 
  Country: None (occurrence: None)
  Receive Date: 20060316
  Receipt Date: 20060308
  Transmission Date: 20060701
  Serious: Yes (Other)
  Sender: FDA-Public Use
  Company Number: US-AVENTIS-200612257US

PATIENT
  Sex: Female

DRUGS (3)
  1. KETEK [Suspect]
     Indication: SINUSITIS
     Route: 048
     Dates: start: 20051101
  2. CHONDROITIN [Concomitant]
     Dosage: DOSE: UNKNOWN
  3. MULTIVITAMINS, PLAIN [Concomitant]
     Dosage: DOSE: UNKNOWN

REACTIONS (6)
  - ASTHENIA [None]
  - BLOOD CREATINE PHOSPHOKINASE INCREASED [None]
  - BURNING SENSATION [None]
  - FALL [None]
  - MOBILITY DECREASED [None]
  - RHABDOMYOLYSIS [None]
